FAERS Safety Report 13041682 (Version 1)
Quarter: 2016Q4

REPORT INFORMATION
  Report Type: Spontaneous
  Country: US (occurrence: US)
  Receive Date: 20161219
  Receipt Date: 20161219
  Transmission Date: 20170207
  Serious: No
  Sender: FDA-Public Use
  Company Number: US-ROCHE-1386131

PATIENT
  Sex: Male

DRUGS (6)
  1. IPIDACRINE [Concomitant]
     Active Substance: IPIDACRINE
  2. DABRAFENIB [Concomitant]
     Active Substance: DABRAFENIB
  3. ABRAXANE [Concomitant]
     Active Substance: PACLITAXEL
  4. ZELBORAF [Suspect]
     Active Substance: VEMURAFENIB
     Indication: METASTATIC MALIGNANT MELANOMA
     Route: 065
  5. DTIC [Concomitant]
     Active Substance: DACARBAZINE
  6. AVASTIN [Suspect]
     Active Substance: BEVACIZUMAB
     Indication: METASTATIC MALIGNANT MELANOMA
     Route: 065

REACTIONS (3)
  - Metastases to peritoneum [Unknown]
  - Metastases to central nervous system [Unknown]
  - Metastases to gastrointestinal tract [Unknown]
